FAERS Safety Report 6155086-3 (Version None)
Quarter: 2009Q2

REPORT INFORMATION
  Report Type: 
  Country: None (occurrence: None)
  Receive Date: 20090410
  Receipt Date: 20090330
  Transmission Date: 20091009
  Serious: Yes (Death, Life-Threatening, Other)
  Sender: FDA-Public Use
  Company Number: ADE2009-0528

PATIENT
  Age: 12 Day

DRUGS (3)
  1. CEFTRIAXONE INJECTABLE [Suspect]
     Dosage: 200MG - Q24 HOURS - IV
     Route: 042
  2. CALCIUM GLUCONATE [Suspect]
     Dosage: 10% - IV
     Route: 042
  3. METRONIDAZOLE [Concomitant]

REACTIONS (2)
  - CARDIO-RESPIRATORY ARREST NEONATAL [None]
  - DEATH NEONATAL [None]
